FAERS Safety Report 9525091 (Version 1)
Quarter: 2013Q3

REPORT INFORMATION
  Report Type: Spontaneous
  Country: US (occurrence: None)
  Receive Date: 20130913
  Receipt Date: 20130913
  Transmission Date: 20140515
  Serious: Yes (Hospitalization)
  Sender: FDA-Public Use
  Company Number: None

PATIENT
  Age: 71 Year
  Sex: Male

DRUGS (1)
  1. NEXAVAR 200 MG [Suspect]
     Dosage: 400   BID  PO
     Route: 048
     Dates: start: 20130820, end: 201309

REACTIONS (2)
  - Angina pectoris [None]
  - Gingival pain [None]
